FAERS Safety Report 4876493-2 (Version None)
Quarter: 2005Q4

REPORT INFORMATION
  Report Type: 
  Country: None (occurrence: None)
  Receive Date: 20051206
  Receipt Date: 20051026
  Transmission Date: 20060501
  Serious: No
  Sender: FDA-Public Use
  Company Number: USA0507101850

PATIENT
  Age: 48 Year
  Sex: Female

DRUGS (4)
  1. CYMBALTA [Suspect]
     Indication: DEPRESSION
     Dosage: 90 MG DAY
     Dates: start: 20050531
  2. DOXYCYCLINE [Concomitant]
  3. KLONOPIN [Concomitant]
  4. TRAZODONE HCL [Concomitant]

REACTIONS (3)
  - GLOBAL AMNESIA [None]
  - LUMBAR PUNCTURE ABNORMAL [None]
  - TENSION HEADACHE [None]
